FAERS Safety Report 5534724-X (Version None)
Quarter: 2007Q4

REPORT INFORMATION
  Report Type: 
  Country: None (occurrence: None)
  Receive Date: 20071205
  Receipt Date: 20071122
  Transmission Date: 20080405
  Serious: Yes (Death, Hospitalization)
  Sender: FDA-Public Use
  Company Number: GB-AMGEN-US222870

PATIENT
  Sex: Female
  Weight: 86 kg

DRUGS (14)
  1. ENBREL [Suspect]
     Indication: RHEUMATOID ARTHRITIS
     Route: 058
     Dates: start: 20031107, end: 20070412
  2. PREDNISOLONE [Suspect]
     Indication: DRUG USE FOR UNKNOWN INDICATION
     Route: 048
  3. ALENDRONATE SODIUM [Concomitant]
     Route: 058
  4. DIGOXIN [Concomitant]
     Dosage: UNKNOWN
     Route: 065
  5. DICLOFENAC [Concomitant]
     Dosage: UNKNOWN
     Route: 065
  6. ACETYLSALICYLIC ACID SRT [Concomitant]
     Dosage: UNKNOWN
     Route: 065
  7. AMITRIPTLINE HCL [Concomitant]
     Dosage: UNKNOWN
     Route: 065
  8. ADCAL D3 [Concomitant]
     Dosage: UNKNOWN
     Route: 065
  9. PARACETAMOL [Concomitant]
     Dosage: UNKNOWN
     Route: 065
  10. CITALOPRAM HYDROBROMIDE [Concomitant]
     Dosage: UNKNOWN
     Route: 065
  11. FUROSEMIDE [Concomitant]
     Dosage: UNKNOWN
     Route: 065
  12. RABEPRAZOLE SODIUM [Concomitant]
     Dosage: UNKNOWN
     Route: 065
  13. METHOTREXATE [Concomitant]
     Dosage: UNKNOWN
     Route: 065
  14. ZOTON [Concomitant]
     Dosage: UNKNOWN
     Route: 065

REACTIONS (4)
  - CHOLANGITIS [None]
  - CHOLELITHIASIS [None]
  - STREPTOCOCCAL SEPSIS [None]
  - SURGERY [None]
